FAERS Safety Report 23033667 (Version 1)
Quarter: 2023Q4

REPORT INFORMATION
  Report Type: Spontaneous
  Country: US (occurrence: US)
  Receive Date: 20231005
  Receipt Date: 20231005
  Transmission Date: 20240110
  Serious: No
  Sender: FDA-Public Use
  Company Number: US-HORIZON THERAPEUTICS-HZN-2023-001124

PATIENT

DRUGS (3)
  1. KRYSTEXXA [Suspect]
     Active Substance: PEGLOTICASE
     Indication: Gouty tophus
     Dosage: EVERY 2 WEEKS (INFUSION 1)
     Route: 042
     Dates: start: 20221207
  2. KRYSTEXXA [Suspect]
     Active Substance: PEGLOTICASE
     Dosage: EVERY 2 WEEKS (INFUSION 2)
     Route: 042
     Dates: start: 202212
  3. KRYSTEXXA [Suspect]
     Active Substance: PEGLOTICASE
     Dosage: EVERY 2 WEEKS (INFUSION 3)
     Route: 042
     Dates: start: 202301

REACTIONS (5)
  - Pyrexia [Unknown]
  - Chills [Unknown]
  - Blood uric acid increased [Recovered/Resolved]
  - Drug ineffective [Unknown]
  - Gout [Not Recovered/Not Resolved]

NARRATIVE: CASE EVENT DATE: 20221201
